FAERS Safety Report 8348122-7 (Version None)
Quarter: 2012Q2

REPORT INFORMATION
  Report Type: 
  Country: None (occurrence: None)
  Receive Date: 20120509
  Receipt Date: 20120429
  Transmission Date: 20120825
  Serious: No
  Sender: FDA-Public Use
  Company Number: US-BAYER-2012-045016

PATIENT

DRUGS (1)
  1. NAPROXEN SODIUM [Suspect]
     Indication: ABDOMINAL PAIN

REACTIONS (1)
  - MUSCLE SPASMS [None]
